FAERS Safety Report 10885347 (Version 3)
Quarter: 2015Q2

REPORT INFORMATION
  Report Type: Spontaneous
  Country: US (occurrence: None)
  Receive Date: 20150227
  Receipt Date: 20150529
  Transmission Date: 20150821
  Serious: Yes (Other)
  Sender: FDA-Public Use
  Company Number: US-DEXPHARM-20150143

PATIENT
  Age: 60 Year
  Sex: Female
  Weight: 74.83 kg

DRUGS (2)
  1. OMEPRAZOLE DELAYED RELEASE [Suspect]
     Active Substance: OMEPRAZOLE
     Indication: DYSPEPSIA
     Route: 048
     Dates: start: 20140914, end: 20140924
  2. OMEPRAZOLE DELAYED RELEASE [Suspect]
     Active Substance: OMEPRAZOLE
     Indication: GASTROOESOPHAGEAL REFLUX DISEASE
     Route: 048
     Dates: start: 20140914, end: 20140924

REACTIONS (26)
  - Dizziness [None]
  - Hepatitis [None]
  - Blood bilirubin increased [None]
  - Decreased appetite [None]
  - Erythema [None]
  - Ill-defined disorder [None]
  - Impaired work ability [None]
  - Rhinorrhoea [None]
  - Asthenia [None]
  - Alanine aminotransferase increased [None]
  - Myalgia [None]
  - Chills [None]
  - Feeling abnormal [None]
  - Muscle spasms [None]
  - Respiratory tract congestion [None]
  - Fatigue [None]
  - Jaundice [None]
  - Aspartate aminotransferase increased [None]
  - Glucose urine present [None]
  - Pruritus [None]
  - Hepatic function abnormal [None]
  - Faeces pale [None]
  - Chromaturia [None]
  - Mood swings [None]
  - Blood urine present [None]
  - Condition aggravated [None]

NARRATIVE: CASE EVENT DATE: 201409
